FAERS Safety Report 9251445 (Version 1)
Quarter: 2013Q2

REPORT INFORMATION
  Report Type: Spontaneous
  Country: US (occurrence: US)
  Receive Date: 20130424
  Receipt Date: 20130424
  Transmission Date: 20140414
  Serious: Yes (Death)
  Sender: FDA-Public Use
  Company Number: US-PFIZER INC-2013127909

PATIENT
  Age: 76 Year
  Sex: Female

DRUGS (4)
  1. SUTENT [Suspect]
     Indication: RENAL CANCER
     Dosage: 25 MG, UNK
     Dates: start: 20130306
  2. IMODIUM A-D [Concomitant]
     Dosage: UNK
  3. ONGLYZA [Concomitant]
     Dosage: UNK
  4. ZANTAC [Concomitant]
     Dosage: UNK

REACTIONS (1)
  - Death [Fatal]
